FAERS Safety Report 10630049 (Version 1)
Quarter: 2014Q4

REPORT INFORMATION
  Report Type: Spontaneous
  Country: US (occurrence: US)
  Receive Date: 20141205
  Receipt Date: 20141205
  Transmission Date: 20150529
  Serious: No
  Sender: FDA-Public Use
  Company Number: US-BRISTOL-MYERS SQUIBB COMPANY-21265236

PATIENT
  Age: 58 Year
  Sex: Male

DRUGS (1)
  1. SPRYCEL [Suspect]
     Active Substance: DASATINIB
     Indication: CHRONIC MYELOID LEUKAEMIA
     Route: 048

REACTIONS (7)
  - Cough [Unknown]
  - Face oedema [Unknown]
  - Peripheral swelling [Unknown]
  - Weight increased [Unknown]
  - Swelling face [Unknown]
  - Breath sounds abnormal [Unknown]
  - Rash [Unknown]

NARRATIVE: CASE EVENT DATE: 20140730
